FAERS Safety Report 9603098 (Version 1)
Quarter: 2013Q4

REPORT INFORMATION
  Report Type: Spontaneous
  Country: GB (occurrence: GB)
  Receive Date: 20131007
  Receipt Date: 20131007
  Transmission Date: 20140711
  Serious: Yes (Other)
  Sender: FDA-Public Use
  Company Number: GB-GLAXOSMITHKLINE-B0925875A

PATIENT
  Age: 58 Year
  Sex: Female
  Weight: 53.97 kg

DRUGS (4)
  1. ACICLOVIR [Suspect]
     Indication: HERPES ZOSTER
     Dosage: 4000MG PER DAY
     Dates: start: 20130828, end: 20130903
  2. FELODIPINE [Concomitant]
     Dosage: 10MG PER DAY
  3. PARACETAMOL [Concomitant]
     Indication: HERPES ZOSTER
  4. IBUPROFEN [Concomitant]
     Indication: HERPES ZOSTER

REACTIONS (2)
  - Lethargy [Recovered/Resolved]
  - Fatigue [Recovered/Resolved]
